FAERS Safety Report 8834513 (Version 1)
Quarter: 2012Q4

REPORT INFORMATION
  Report Type: 
  Country: US (occurrence: US)
  Receive Date: 20121010
  Receipt Date: 20121010
  Transmission Date: 20130627
  Serious: No
  Sender: FDA-Public Use
  Company Number: US-PFIZER INC-2012249955

PATIENT
  Age: 60 Year
  Sex: Female
  Weight: 56.69 kg

DRUGS (3)
  1. LIPITOR [Suspect]
     Indication: BLOOD CHOLESTEROL ABNORMAL
     Dosage: 20 mg, daily
     Dates: start: 2010
  2. METFORMIN HYDROCHLORIDE [Suspect]
     Indication: DIABETES MELLITUS
     Dosage: 500 mg/5 mg, 2x/day
     Dates: start: 2007
  3. CALCIUM [Concomitant]
     Dosage: UNK

REACTIONS (6)
  - Chest pain [Not Recovered/Not Resolved]
  - Palpitations [Not Recovered/Not Resolved]
  - Paraesthesia [Not Recovered/Not Resolved]
  - Joint range of motion decreased [Not Recovered/Not Resolved]
  - Drug ineffective [Unknown]
  - Blood glucose increased [Unknown]
